FAERS Safety Report 22639222 (Version 1)
Quarter: 2023Q2

REPORT INFORMATION
  Report Type: Spontaneous
  Country: JP (occurrence: JP)
  Receive Date: 20230626
  Receipt Date: 20230626
  Transmission Date: 20230722
  Serious: Yes (Hospitalization)
  Sender: FDA-Public Use
  Company Number: JP-Ipsen Biopharmaceuticals, Inc.-2023-15016

PATIENT
  Age: 77 Year
  Sex: Female

DRUGS (6)
  1. LANREOTIDE ACETATE [Suspect]
     Active Substance: LANREOTIDE ACETATE
     Indication: Neuroendocrine tumour
     Route: 058
  2. LOXOPROFEN [Concomitant]
     Active Substance: LOXOPROFEN
     Dosage: 80 MG PO
  3. DAYVIGO [Concomitant]
     Active Substance: LEMBOREXANT
     Dosage: 5 MG/DAY PO
  4. LANSOPRAZOLE [Concomitant]
     Active Substance: LANSOPRAZOLE
     Dosage: 15 MG/DAY PO
  5. MINODRONIC ACID [Concomitant]
     Active Substance: MINODRONIC ACID
     Indication: Osteoporosis
     Dosage: 50 MILLIGRAM PER 4 WEEKS PO
  6. POTASSIUM ASPARTATE [Concomitant]
     Active Substance: POTASSIUM ASPARTATE
     Dosage: 300 MILLIGRAM 2-3 TIMES A DAY PO

REACTIONS (1)
  - Malaise [Recovered/Resolved]
